FAERS Safety Report 5793908-6 (Version None)
Quarter: 2008Q2

REPORT INFORMATION
  Report Type: 
  Country: None (occurrence: None)
  Receive Date: 20080627
  Receipt Date: 20080619
  Transmission Date: 20081010
  Serious: Yes (Hospitalization)
  Sender: FDA-Public Use
  Company Number: NL-PFIZER INC-2008036195

PATIENT
  Sex: Male

DRUGS (19)
  1. MARAVIROC [Suspect]
     Indication: HIV INFECTION
     Route: 048
  2. DARUNAVIR [Concomitant]
     Route: 048
  3. RITONAVIR [Concomitant]
     Route: 048
  4. ENFUVIRTIDE [Concomitant]
     Route: 058
  5. AMLODIPINE [Concomitant]
     Route: 048
  6. METOPROLOL [Concomitant]
     Route: 048
  7. GLIMEPIRIDE [Concomitant]
     Route: 048
  8. PERINDOPRIL ERBUMINE [Concomitant]
     Route: 048
  9. FOLIC ACID [Concomitant]
     Route: 048
  10. TEMAZEPAM [Concomitant]
     Route: 048
  11. NITROGLYCERIN [Concomitant]
     Route: 061
  12. ISOSORBIDE MONONITRATE [Concomitant]
     Route: 048
  13. TELBIVUDINE [Concomitant]
     Route: 048
  14. OMEPRAZOLE [Concomitant]
     Route: 048
  15. FUROSEMIDE [Concomitant]
     Route: 048
  16. SPIRONOLACTONE [Concomitant]
     Route: 048
  17. CLOPIDOGREL [Concomitant]
     Route: 048
  18. PRAVASTATIN [Concomitant]
     Route: 048
  19. CARBASALATE [Concomitant]
     Route: 048

REACTIONS (1)
  - ACUTE CORONARY SYNDROME [None]
